FAERS Safety Report 4474481-1 (Version None)
Quarter: 2004Q4

REPORT INFORMATION
  Report Type: 
  Country: None (occurrence: None)
  Receive Date: 20041014
  Receipt Date: 20040917
  Transmission Date: 20050328
  Serious: Yes (Hospitalization)
  Sender: FDA-Public Use
  Company Number: JP-GLAXOSMITHKLINE-B0345983A

PATIENT
  Age: 77 Year
  Sex: Male

DRUGS (7)
  1. VALTREX [Suspect]
     Indication: HERPES ZOSTER
     Dosage: 1000MG THREE TIMES PER DAY
     Route: 048
     Dates: start: 20040907, end: 20040909
  2. AMLODIN [Concomitant]
     Indication: HYPERTENSION
     Route: 048
  3. LASIX [Concomitant]
     Dosage: 20MG PER DAY
     Route: 048
  4. TANKARU [Concomitant]
     Dosage: 1G THREE TIMES PER DAY
     Route: 048
  5. PLETAL [Concomitant]
     Dosage: 100MG TWICE PER DAY
     Route: 048
  6. ROCALTOROL [Concomitant]
     Dosage: .25MCG PER DAY
     Route: 048
  7. FLUITRAN [Concomitant]
     Dosage: 2MG PER DAY
     Route: 048

REACTIONS (5)
  - APHASIA [None]
  - DELUSION [None]
  - DISORIENTATION [None]
  - OVERDOSE [None]
  - RESTLESSNESS [None]
